FAERS Safety Report 18926517 (Version 2)
Quarter: 2021Q1

REPORT INFORMATION
  Report Type: Spontaneous
  Country: IT (occurrence: IT)
  Receive Date: 20210223
  Receipt Date: 20210303
  Transmission Date: 20210420
  Serious: Yes (Other)
  Sender: FDA-Public Use
  Company Number: IT-AMGEN-ITASP2021023388

PATIENT
  Age: 66 Year
  Sex: Female

DRUGS (1)
  1. AMGEVITA [Suspect]
     Active Substance: ADALIMUMAB
     Indication: RHEUMATOID ARTHRITIS
     Dosage: 40 MILLIGRAM, CYCLICAL
     Route: 058
     Dates: start: 20190228, end: 20190930

REACTIONS (3)
  - Rheumatoid arthritis [Recovered/Resolved]
  - Pancreatitis [Recovered/Resolved]
  - Therapeutic response changed [Recovered/Resolved]

NARRATIVE: CASE EVENT DATE: 20190331
